FAERS Safety Report 5391098-5 (Version None)
Quarter: 2007Q3

REPORT INFORMATION
  Report Type: 
  Country: None (occurrence: None)
  Receive Date: 20070717
  Receipt Date: 20070709
  Transmission Date: 20080115
  Serious: Yes (Hospitalization)
  Sender: FDA-Public Use
  Company Number: 235610K07USA

PATIENT
  Sex: Male

DRUGS (1)
  1. REBIF [Suspect]
     Indication: MULTIPLE SCLEROSIS

REACTIONS (7)
  - ABASIA [None]
  - EATING DISORDER [None]
  - EYE DISORDER [None]
  - HYPOKINESIA [None]
  - SOMNOLENCE [None]
  - VOMITING [None]
  - WEIGHT DECREASED [None]
